FAERS Safety Report 8766724 (Version 1)
Quarter: 2012Q4

REPORT INFORMATION
  Report Type: 
  Country: US (occurrence: US)
  Receive Date: 20120904
  Receipt Date: 20120904
  Transmission Date: 20130627
  Serious: Yes (Other)
  Sender: FDA-Public Use
  Company Number: US-SANOFI-AVENTIS-2012SA061074

PATIENT
  Sex: Female

DRUGS (5)
  1. PLAVIX [Suspect]
     Indication: STENT PLACEMENT
     Route: 048
     Dates: start: 2006, end: 2008
  2. PLAVIX [Suspect]
     Indication: STENT PLACEMENT
     Route: 048
     Dates: start: 2008
  3. LISINOPRIL [Concomitant]
  4. LIPITOR /UNK/ [Concomitant]
  5. OMEGA 3 [Concomitant]

REACTIONS (6)
  - Gallbladder disorder [Unknown]
  - Tooth disorder [Unknown]
  - Nausea [Unknown]
  - Vomiting [Unknown]
  - Diarrhoea [Unknown]
  - Abdominal pain [Unknown]
